FAERS Safety Report 8500673-8 (Version None)
Quarter: 2012Q3

REPORT INFORMATION
  Report Type: 
  Country: None (occurrence: None)
  Receive Date: 20120710
  Receipt Date: 20120706
  Transmission Date: 20120928
  Serious: Yes (Other)
  Sender: FDA-Public Use
  Company Number: CA-ROCHE-1001306

PATIENT
  Sex: Female
  Weight: 74.002 kg

DRUGS (14)
  1. SIMVASTATIN [Concomitant]
  2. PREDNISONE [Concomitant]
  3. ACTEMRA [Suspect]
     Indication: RHEUMATOID ARTHRITIS
     Route: 042
     Dates: start: 20110419
  4. VITAMIN D [Concomitant]
  5. VITAMIN B-12 [Concomitant]
  6. PANTOPRAZOLE SODIUM [Concomitant]
  7. FOSAMAX [Concomitant]
  8. FOLIC ACID [Concomitant]
  9. CALCIUM [Concomitant]
  10. COUMADIN [Concomitant]
  11. LOPRESSOR [Concomitant]
  12. ACETAMINOPHEN [Concomitant]
  13. METHOTREXATE [Concomitant]
  14. VITAMIN A [Concomitant]

REACTIONS (2)
  - LUNG DISORDER [None]
  - HAEMOGLOBIN DECREASED [None]
